FAERS Safety Report 5834858-6 (Version None)
Quarter: 2008Q3

REPORT INFORMATION
  Report Type: 
  Country: None (occurrence: None)
  Receive Date: 20080805
  Receipt Date: 20080805
  Transmission Date: 20090109
  Serious: Yes (Other)
  Sender: FDA-Public Use
  Company Number: None

PATIENT
  Sex: Male
  Weight: 80.7403 kg

DRUGS (2)
  1. FENTANYL [Suspect]
     Indication: BACK PAIN
     Dosage: 100 MCG ONE Q3D PATCH
     Dates: start: 20050525
  2. FENTANYL [Suspect]
     Indication: OSTEOARTHRITIS
     Dosage: 100 MCG ONE Q3D PATCH
     Dates: start: 20050525

REACTIONS (1)
  - SKIN REACTION [None]
